FAERS Safety Report 8696657 (Version 3)
Quarter: 2012Q4

REPORT INFORMATION
  Report Type: 
  Country: US (occurrence: US)
  Receive Date: 20120801
  Receipt Date: 20121002
  Transmission Date: 20130627
  Serious: Yes (Life-Threatening, Hospitalization, Other)
  Sender: FDA-Public Use
  Company Number: US-ACTELION-A-US2012-69116

PATIENT
  Age: 69 Year
  Sex: Female

DRUGS (2)
  1. TRACLEER [Suspect]
     Indication: PULMONARY ARTERIAL HYPERTENSION
     Dosage: UNK
     Route: 048
  2. COUMADIN [Concomitant]

REACTIONS (8)
  - Transient ischaemic attack [Unknown]
  - Nausea [Unknown]
  - Cerebrovascular accident [Unknown]
  - Dizziness [Unknown]
  - Malaise [Unknown]
  - Urticaria [Unknown]
  - Ear infection [Unknown]
  - Increased upper airway secretion [Unknown]
